FAERS Safety Report 25980729 (Version 1)
Quarter: 2025Q4

REPORT INFORMATION
  Report Type: Report from Study
  Country: US (occurrence: US)
  Receive Date: 20251030
  Receipt Date: 20251030
  Transmission Date: 20260118
  Serious: Yes (Other)
  Sender: ALEXION PHARMACEUTICALS
  Company Number: US-AstraZeneca-CH-00978916A

PATIENT
  Sex: Female

DRUGS (1)
  1. BUDESONIDE\FORMOTEROL\GLYCOPYRRONIUM [Suspect]
     Active Substance: BUDESONIDE\FORMOTEROL\GLYCOPYRRONIUM
     Dosage: UNK
     Route: 065

REACTIONS (31)
  - General physical health deterioration [Unknown]
  - Fibromyalgia [Unknown]
  - Pain [Unknown]
  - Bipolar disorder [Unknown]
  - Atrial fibrillation [Unknown]
  - Hypertension [Unknown]
  - Hyperlipidaemia [Unknown]
  - Gastrooesophageal reflux disease [Unknown]
  - Immunodeficiency [Unknown]
  - Osteoarthritis [Unknown]
  - Diabetes mellitus [Unknown]
  - Anxiety [Unknown]
  - Rhinitis allergic [Unknown]
  - Chronic obstructive pulmonary disease [Unknown]
  - Hepatic steatosis [Unknown]
  - Cerebral infarction [Unknown]
  - Lyme disease [Unknown]
  - Leukocytosis [Unknown]
  - Type 2 diabetes mellitus [Unknown]
  - Conversion disorder [Unknown]
  - Attention deficit hyperactivity disorder [Unknown]
  - Bulimia nervosa [Unknown]
  - Post-traumatic stress disorder [Unknown]
  - Intervertebral disc degeneration [Unknown]
  - Rheumatoid arthritis [Unknown]
  - Sjogren^s syndrome [Unknown]
  - Tachycardia [Unknown]
  - Atrial flutter [Unknown]
  - Atrial fibrillation [Unknown]
  - Anticoagulation drug level [Unknown]
  - Stress [Unknown]
